FAERS Safety Report 14776618 (Version 1)
Quarter: 2018Q2

REPORT INFORMATION
  Report Type: Spontaneous
  Country: KR (occurrence: KR)
  Receive Date: 20180418
  Receipt Date: 20180418
  Transmission Date: 20180711
  Serious: Yes (Hospitalization)
  Sender: FDA-Public Use
  Company Number: KR-UNICHEM PHARMACEUTICALS (USA) INC-UCM201804-000105

PATIENT
  Age: 86 Year
  Sex: Female
  Weight: 40 kg

DRUGS (8)
  1. DIAZEPAM. [Concomitant]
     Active Substance: DIAZEPAM
     Indication: DEPRESSION
  2. FLUOXETINE [Concomitant]
     Active Substance: FLUOXETINE HYDROCHLORIDE
     Indication: DEPRESSION
  3. MEMANTINE HCL 10 MG TABLETS [Suspect]
     Active Substance: MEMANTINE HYDROCHLORIDE
  4. TIANEPTINE [Concomitant]
     Active Substance: TIANEPTINE
     Indication: DEPRESSION
  5. MEMANTINE HCL 10 MG TABLETS [Suspect]
     Active Substance: MEMANTINE HYDROCHLORIDE
  6. BUPROPION. [Suspect]
     Active Substance: BUPROPION
     Indication: DEPRESSION
  7. DONEPEZIL. [Concomitant]
     Active Substance: DONEPEZIL
  8. LEVODOPA [Concomitant]
     Active Substance: LEVODOPA

REACTIONS (3)
  - Nausea [Recovered/Resolved]
  - Myoclonus [Recovered/Resolved]
  - Vomiting [Recovered/Resolved]
